FAERS Safety Report 10588183 (Version 1)
Quarter: 2014Q4

REPORT INFORMATION
  Report Type: Spontaneous
  Country: DK (occurrence: GB)
  Receive Date: 20141117
  Receipt Date: 20141117
  Transmission Date: 20150529
  Serious: Yes (Other)
  Sender: FDA-Public Use
  Company Number: GB-FRI-1000072392

PATIENT
  Age: 29 Year
  Sex: Female
  Weight: 63.68 kg

DRUGS (2)
  1. CITALOPRAM [Suspect]
     Active Substance: CITALOPRAM HYDROBROMIDE
     Indication: ANXIETY
     Dosage: 20 MG ONCE DAILY
     Route: 048
     Dates: start: 20141008, end: 20141016
  2. CITALOPRAM [Suspect]
     Active Substance: CITALOPRAM HYDROBROMIDE
     Indication: DEPRESSION

REACTIONS (5)
  - Thirst [Recovered/Resolved]
  - Weight decreased [Recovering/Resolving]
  - Nausea [Recovered/Resolved]
  - Feeding disorder [Recovered/Resolved]
  - Pupils unequal [Recovering/Resolving]

NARRATIVE: CASE EVENT DATE: 20141009
